FAERS Safety Report 5874246-X (Version None)
Quarter: 2008Q3

REPORT INFORMATION
  Report Type: 
  Country: None (occurrence: None)
  Receive Date: 20080908
  Receipt Date: 20080826
  Transmission Date: 20090109
  Serious: Yes (Other)
  Sender: FDA-Public Use
  Company Number: FR-ELI_LILLY_AND_COMPANY-FR200807003587

PATIENT
  Age: 61 Year
  Sex: Female
  Weight: 80 kg

DRUGS (4)
  1. FORTEO [Suspect]
     Indication: OSTEOPOROSIS
     Dosage: 20 UG, DAILY (1/D)
     Route: 058
     Dates: start: 20070901
  2. FORTEO [Suspect]
     Dosage: UNK, UNKNOWN
     Route: 058
  3. LODOZ [Concomitant]
     Indication: HYPERTENSION
     Dosage: 5 MG, DAILY (1/D)
     Route: 048
  4. PIASCLEDINE                        /00809501/ [Concomitant]
     Indication: OSTEOARTHRITIS
     Dosage: 1 D/F, DAILY (1/D)
     Route: 048

REACTIONS (1)
  - DEEP VEIN THROMBOSIS [None]
